FAERS Safety Report 7509421-1 (Version None)
Quarter: 2011Q2

REPORT INFORMATION
  Report Type: 
  Country: None (occurrence: None)
  Receive Date: 20110527
  Receipt Date: 20101221
  Transmission Date: 20111010
  Serious: Yes (Congenital Anomaly, Other)
  Sender: FDA-Public Use
  Company Number: PHHY2010US92194

PATIENT

DRUGS (1)
  1. METHADONE HCL [Suspect]
     Dosage: UNK
     Route: 064

REACTIONS (19)
  - DRUG EXPOSURE DURING PREGNANCY [None]
  - LYMPHADENOPATHY [None]
  - CONGENITAL CARDIOVASCULAR ANOMALY [None]
  - TOOTH DISORDER [None]
  - CONGENITAL MUSCULOSKELETAL ANOMALY [None]
  - APPETITE DISORDER [None]
  - SKIN DISORDER [None]
  - DRUG WITHDRAWAL SYNDROME NEONATAL [None]
  - HORMONE LEVEL ABNORMAL [None]
  - EAR, NOSE AND THROAT EXAMINATION ABNORMAL [None]
  - POST PROCEDURAL COMPLICATION [None]
  - FOETAL DISORDER [None]
  - CONGENITAL EYE DISORDER [None]
  - DRUG ABUSE [None]
  - RESPIRATORY DISORDER NEONATAL [None]
  - SEXUALLY TRANSMITTED DISEASE [None]
  - LABOUR COMPLICATION [None]
  - GASTROINTESTINAL DISORDER CONGENITAL [None]
  - CONGENITAL GENITOURINARY ABNORMALITY [None]
